FAERS Safety Report 24464707 (Version 1)
Quarter: 2024Q4

REPORT INFORMATION
  Report Type: Report from Study
  Country: US (occurrence: US)
  Receive Date: 20241018
  Receipt Date: 20241018
  Transmission Date: 20250115
  Serious: No
  Sender: ROCHE
  Company Number: US-ROCHE-3503212

PATIENT
  Age: 52 Year
  Sex: Female
  Weight: 50.8 kg

DRUGS (5)
  1. XOLAIR [Suspect]
     Active Substance: OMALIZUMAB
     Indication: Asthma
     Dosage: LAST DATE OF INJECTION: 04/JAN/2022, 28/SEP/2023, 26/DEC/2023.
     Route: 058
  2. XOLAIR [Suspect]
     Active Substance: OMALIZUMAB
     Indication: Idiopathic urticaria
  3. XOLAIR [Suspect]
     Active Substance: OMALIZUMAB
     Indication: Asthma
  4. XOLAIR [Suspect]
     Active Substance: OMALIZUMAB
     Indication: Urticaria
  5. DUPIXENT [Concomitant]
     Active Substance: DUPILUMAB
     Route: 058
     Dates: start: 20230606

REACTIONS (2)
  - Off label use [Unknown]
  - No adverse event [Unknown]
